FAERS Safety Report 18377970 (Version 1)
Quarter: 2020Q4

REPORT INFORMATION
  Report Type: Spontaneous
  Country: GB (occurrence: GB)
  Receive Date: 20201013
  Receipt Date: 20201013
  Transmission Date: 20210114
  Serious: Yes (Death, Hospitalization)
  Sender: FDA-Public Use
  Company Number: GB-SA-2020SA281202

PATIENT

DRUGS (2)
  1. CABAZITAXEL [Suspect]
     Active Substance: CABAZITAXEL
     Indication: PROSTATE CANCER
     Dosage: UNK
     Route: 042
     Dates: start: 20190913, end: 20190913
  2. CABAZITAXEL [Suspect]
     Active Substance: CABAZITAXEL
     Dosage: UNK
     Route: 042
     Dates: start: 20191108, end: 20191108

REACTIONS (1)
  - Disease progression [Fatal]

NARRATIVE: CASE EVENT DATE: 201910
